FAERS Safety Report 6424713-5 (Version None)
Quarter: 2009Q4

REPORT INFORMATION
  Report Type: 
  Country: None (occurrence: None)
  Receive Date: 20091028
  Receipt Date: 20090217
  Transmission Date: 20100525
  Serious: Yes (Other)
  Sender: FDA-Public Use
  Company Number: 614138

PATIENT
  Age: 60 Year
  Sex: Female

DRUGS (15)
  1. ALEVE [Suspect]
     Indication: INFLAMMATION
     Dosage: 660 MG  3 PER 1 DAY
     Dates: start: 20070701, end: 20080901
  2. ALEVE [Suspect]
     Indication: PAIN
     Dosage: 660 MG  3 PER 1 DAY
     Dates: start: 20070701, end: 20080901
  3. NAPROSYN [Suspect]
     Dates: end: 20080901
  4. BUSPAR [Concomitant]
  5. PROVIGIL [Concomitant]
  6. STRATTERA [Concomitant]
  7. PERIACTIN [Concomitant]
  8. PROMETRIUM [Concomitant]
  9. VIVELLE-DOT [Concomitant]
  10. ZANTAC [Concomitant]
  11. VITAMIN (VITAMIN NOS) [Concomitant]
  12. LOTREL (AMLODIPINE BESYLATE/BENAZEPRIL HYDROCHLORIDE) [Concomitant]
  13. ACEBUTOLOL [Concomitant]
  14. TRAMADOL HCL [Concomitant]
  15. DICLOFENAC (DICLOFENAC) [Concomitant]

REACTIONS (3)
  - GASTRIC ULCER [None]
  - GASTROOESOPHAGEAL REFLUX DISEASE [None]
  - NAUSEA [None]
